FAERS Safety Report 6370396-2 (Version None)
Quarter: 2009Q3

REPORT INFORMATION
  Report Type: 
  Country: None (occurrence: None)
  Receive Date: 20090923
  Receipt Date: 20090810
  Transmission Date: 20100115
  Serious: No
  Sender: FDA-Public Use
  Company Number: US-BAYER-200929998NA

PATIENT
  Age: 53 Year
  Sex: Female

DRUGS (1)
  1. CLIMARA PRO [Suspect]
     Indication: HORMONE REPLACEMENT THERAPY
     Route: 062
     Dates: start: 20070101

REACTIONS (2)
  - HOT FLUSH [None]
  - INSOMNIA [None]
